FAERS Safety Report 7806449-9 (Version None)
Quarter: 2011Q4

REPORT INFORMATION
  Report Type: 
  Country: None (occurrence: None)
  Receive Date: 20111011
  Receipt Date: 20110930
  Transmission Date: 20120403
  Serious: Yes (Other)
  Sender: FDA-Public Use
  Company Number: JP-PFIZER INC-2011240581

PATIENT
  Age: 85 Year
  Sex: Female

DRUGS (2)
  1. CELECOXIB [Suspect]
     Route: 048
  2. PROGRAF [Suspect]
     Route: 048

REACTIONS (3)
  - HISTIOCYTOSIS HAEMATOPHAGIC [None]
  - BLOOD DISORDER [None]
  - PANCYTOPENIA [None]
